FAERS Safety Report 20319071 (Version 1)
Quarter: 2022Q1

REPORT INFORMATION
  Report Type: Spontaneous
  Country: US (occurrence: None)
  Receive Date: 20220110
  Receipt Date: 20220110
  Transmission Date: 20220423
  Serious: No
  Sender: FDA-Public Use
  Company Number: None

PATIENT
  Age: 29 Year
  Sex: Male
  Weight: 83.25 kg

DRUGS (2)
  1. DEXTROAMPHET SACCHARAT, AMPHET ASPARTATE, DEXTROAMPHET SULFATE AND AMP [Suspect]
     Active Substance: AMPHETAMINE ASPARTATE\AMPHETAMINE SULFATE\DEXTROAMPHETAMINE SACCHARATE\DEXTROAMPHETAMINE SULFATE
     Indication: Attention deficit hyperactivity disorder
     Dosage: OTHER QUANTITY : 1 TABLET(S);?FREQUENCY : TWICE A DAY;?
     Route: 048
     Dates: start: 20211230
  2. Generic for Adderall IR 20MG [Concomitant]

REACTIONS (10)
  - Product substitution issue [None]
  - Drug ineffective [None]
  - Feeling abnormal [None]
  - Heart rate decreased [None]
  - Back pain [None]
  - Headache [None]
  - Abdominal pain upper [None]
  - Mood swings [None]
  - Anger [None]
  - Wrong dose [None]

NARRATIVE: CASE EVENT DATE: 20220102
